FAERS Safety Report 4662424-7 (Version None)
Quarter: 2005Q2

REPORT INFORMATION
  Report Type: 
  Country: None (occurrence: None)
  Receive Date: 20050516
  Receipt Date: 20050509
  Transmission Date: 20051028
  Serious: Yes (Other)
  Sender: FDA-Public Use
  Company Number: US-MERCK-0505USA00992

PATIENT
  Sex: Male

DRUGS (4)
  1. ZOCOR [Suspect]
     Route: 048
     Dates: end: 20050101
  2. ZOCOR [Suspect]
     Route: 048
     Dates: start: 20050101
  3. INTRON A [Suspect]
     Indication: MALIGNANT MELANOMA
     Route: 042
     Dates: start: 20050301, end: 20050301
  4. INTRON A [Suspect]
     Route: 042
     Dates: start: 20050301, end: 20050415

REACTIONS (3)
  - ALANINE AMINOTRANSFERASE INCREASED [None]
  - ASPARTATE AMINOTRANSFERASE INCREASED [None]
  - HYPERTRIGLYCERIDAEMIA [None]
